FAERS Safety Report 7427181-X (Version None)
Quarter: 2011Q2

REPORT INFORMATION
  Report Type: 
  Country: None (occurrence: None)
  Receive Date: 20110420
  Receipt Date: 20110408
  Transmission Date: 20111010
  Serious: Yes (Hospitalization)
  Sender: FDA-Public Use
  Company Number: US-JNJFOC-20100306394

PATIENT
  Sex: Male
  Weight: 24.6 kg

DRUGS (5)
  1. INFLIXIMAB [Suspect]
     Indication: INFLAMMATORY BOWEL DISEASE
     Route: 042
  2. IRON [Concomitant]
  3. MULTI-VITAMINS [Concomitant]
  4. PREDNISONE [Concomitant]
  5. MERCAPTOPURINE [Concomitant]

REACTIONS (2)
  - ABDOMINAL ABSCESS [None]
  - INTESTINAL PERFORATION [None]
